FAERS Safety Report 25465849 (Version 1)
Quarter: 2025Q2

REPORT INFORMATION
  Report Type: Spontaneous
  Country: US (occurrence: US)
  Receive Date: 20250623
  Receipt Date: 20250623
  Transmission Date: 20250716
  Serious: No
  Sender: ROCHE
  Company Number: US-ROCHE-10000310998

PATIENT
  Sex: Male
  Weight: 71.67 kg

DRUGS (5)
  1. ACTEMRA [Suspect]
     Active Substance: TOCILIZUMAB
     Indication: Rheumatoid arthritis
     Route: 065
  2. VYNDAQEL [Suspect]
     Active Substance: TAFAMIDIS MEGLUMINE
     Indication: Product used for unknown indication
     Route: 048
     Dates: start: 20250508
  3. REMICADE [Concomitant]
     Active Substance: INFLIXIMAB
     Indication: Rheumatoid arthritis
  4. LEFLUNOMIDE [Concomitant]
     Active Substance: LEFLUNOMIDE
     Indication: Rheumatoid arthritis
  5. AMIODARONE [Concomitant]
     Active Substance: AMIODARONE

REACTIONS (7)
  - Ill-defined disorder [Not Recovered/Not Resolved]
  - Temperature intolerance [Unknown]
  - Sinus rhythm [Unknown]
  - Cardiac ablation [Unknown]
  - Hyperhidrosis [Unknown]
  - Weight decreased [Unknown]
  - Atrial fibrillation [Unknown]
